FAERS Safety Report 13000779 (Version 1)
Quarter: 2016Q4

REPORT INFORMATION
  Report Type: Spontaneous
  Country: TW (occurrence: TW)
  Receive Date: 20161206
  Receipt Date: 20161206
  Transmission Date: 20170207
  Serious: Yes (Other)
  Sender: FDA-Public Use
  Company Number: TW-AMGEN-TWNSP2016171456

PATIENT
  Age: 46 Year
  Sex: Female

DRUGS (1)
  1. ENBREL [Suspect]
     Active Substance: ETANERCEPT
     Indication: ANKYLOSING SPONDYLITIS
     Dosage: 25 MG, EVERY 5 DAYS
     Route: 058
     Dates: start: 20130520

REACTIONS (2)
  - Cellulitis [Recovering/Resolving]
  - Product use issue [Recovering/Resolving]
